FAERS Safety Report 13639527 (Version 1)
Quarter: 2017Q2

REPORT INFORMATION
  Report Type: Spontaneous
  Country: US (occurrence: US)
  Receive Date: 20170609
  Receipt Date: 20170609
  Transmission Date: 20170830
  Serious: No
  Sender: FDA-Public Use
  Company Number: US-ROCHE-1073934

PATIENT
  Age: 63 Year
  Sex: Female

DRUGS (7)
  1. PAXIL [Suspect]
     Active Substance: PAROXETINE HYDROCHLORIDE
     Indication: PRODUCT USED FOR UNKNOWN INDICATION
  2. VITAMIN E [Concomitant]
     Active Substance: .ALPHA.-TOCOPHEROL
  3. XANAX [Suspect]
     Active Substance: ALPRAZOLAM
     Route: 065
  4. CLONAZEPAM (TEVA PHARM) [Suspect]
     Active Substance: CLONAZEPAM
     Indication: AGORAPHOBIA
     Route: 048
  5. CLONAZEPAM (TEVA PHARM) [Suspect]
     Active Substance: CLONAZEPAM
     Route: 065
  6. XANAX [Suspect]
     Active Substance: ALPRAZOLAM
     Indication: PRODUCT USED FOR UNKNOWN INDICATION
     Route: 065
  7. KLONOPIN [Suspect]
     Active Substance: CLONAZEPAM
     Indication: ANXIETY
     Route: 048

REACTIONS (9)
  - Chest pain [Unknown]
  - Bone pain [Unknown]
  - Cardiac disorder [Unknown]
  - Malaise [Unknown]
  - Sleep disorder [Recovered/Resolved]
  - Headache [Unknown]
  - Muscle disorder [Unknown]
  - Abasia [Unknown]
  - Arthralgia [Unknown]
